FAERS Safety Report 6635612-8 (Version None)
Quarter: 2010Q1

REPORT INFORMATION
  Report Type: 
  Country: None (occurrence: None)
  Receive Date: 20100315
  Receipt Date: 20100311
  Transmission Date: 20100710
  Serious: Yes (Other)
  Sender: FDA-Public Use
  Company Number: IL-GENENTECH-299093

PATIENT
  Age: 79 Year
  Sex: Female

DRUGS (8)
  1. RANIBIZUMAB [Suspect]
     Indication: MACULAR DEGENERATION
     Dosage: UNK
     Dates: start: 20090714
  2. RANIBIZUMAB [Suspect]
     Dosage: UNK
     Dates: start: 20090817
  3. RADIATION THERAPY [Suspect]
     Indication: MACULAR DEGENERATION
     Dosage: UNK
     Dates: start: 20090714
  4. RAMIPRIL [Concomitant]
     Indication: HYPERTENSION
     Dosage: UNK
     Dates: start: 20070101
  5. SIMVASTATIN [Concomitant]
     Indication: HYPERCHOLESTEROLAEMIA
     Dosage: UNK
     Dates: start: 19990101
  6. ESCITALOPRAM [Concomitant]
     Indication: DEPRESSION
     Dosage: UNK
     Dates: start: 20060101
  7. CEPHALEXIN [Concomitant]
     Indication: DYSURIA
     Dosage: UNK
     Dates: start: 20080101
  8. BISOPROLOL [Concomitant]
     Indication: HYPERTENSION
     Dosage: UNK
     Dates: start: 20020101

REACTIONS (1)
  - RETINAL PIGMENT EPITHELIAL TEAR [None]
